FAERS Safety Report 16784495 (Version 2)
Quarter: 2019Q4

REPORT INFORMATION
  Report Type: Report from Study
  Country: US (occurrence: US)
  Receive Date: 20190909
  Receipt Date: 20191105
  Transmission Date: 20200122
  Serious: Yes (Hospitalization)
  Sender: FDA-Public Use
  Company Number: US-SA-2019SA250429

PATIENT
  Age: 59 Year
  Sex: Female
  Weight: 77.11 kg

DRUGS (1)
  1. TERIFLUNOMIDE. [Suspect]
     Active Substance: TERIFLUNOMIDE
     Indication: MULTIPLE SCLEROSIS
     Dosage: 14 MG, QD
     Route: 048
     Dates: start: 20190830

REACTIONS (5)
  - Headache [Unknown]
  - Cough [Recovering/Resolving]
  - Decreased interest [Unknown]
  - Renal pain [Unknown]
  - Depression [Unknown]

NARRATIVE: CASE EVENT DATE: 201908
